FAERS Safety Report 7927943-6 (Version None)
Quarter: 2011Q4

REPORT INFORMATION
  Report Type: 
  Country: None (occurrence: None)
  Receive Date: 20111118
  Receipt Date: 20111109
  Transmission Date: 20120403
  Serious: Yes (Other)
  Sender: FDA-Public Use
  Company Number: US-JNJFOC-20110608884

PATIENT
  Sex: Female
  Weight: 114.76 kg

DRUGS (7)
  1. PREDNISONE TAB [Concomitant]
     Route: 065
  2. NEXIUM [Concomitant]
     Indication: GASTROOESOPHAGEAL REFLUX DISEASE
     Route: 048
     Dates: start: 20080101
  3. LYRICA [Concomitant]
     Route: 065
  4. REMICADE [Suspect]
     Indication: RHEUMATOID ARTHRITIS
     Route: 042
     Dates: start: 20100901, end: 20110721
  5. TPN [Concomitant]
     Indication: ARTHROPATHY
     Dosage: 2 CANS OF ^SUPPLE^ SOLUTION IN 24 HOURS TO HELP WITH JOINTS.
     Route: 048
     Dates: start: 20090101
  6. PROZAC [Concomitant]
     Route: 065
  7. BENADRYL [Concomitant]
     Dosage: THERAPY DATE: 21-JUL-2011
     Route: 048

REACTIONS (6)
  - SUDDEN HEARING LOSS [None]
  - PRURITUS [None]
  - INFUSION RELATED REACTION [None]
  - SINUSITIS [None]
  - EAR INFECTION [None]
  - FORMICATION [None]
